FAERS Safety Report 19429971 (Version 3)
Quarter: 2025Q2

REPORT INFORMATION
  Report Type: Spontaneous
  Country: US (occurrence: US)
  Receive Date: 20210617
  Receipt Date: 20250610
  Transmission Date: 20250717
  Serious: Yes (Other)
  Sender: KYOWA
  Company Number: US-KYOWAKIRIN-2021BKK009770

PATIENT

DRUGS (2)
  1. CRYSVITA [Suspect]
     Active Substance: BUROSUMAB-TWZA
     Indication: Albright^s disease
     Dosage: 20 MG, 1X/2 WEEKS (20 MG (1.1 MG/KG), BIWEEKLY)
     Route: 058
  2. ROCALTROL [Suspect]
     Active Substance: CALCITRIOL
     Indication: Albright^s disease
     Dosage: UP TO 80 NG/KG OF CALCITRIOL DAILY
     Route: 048

REACTIONS (4)
  - Nephrocalcinosis [Unknown]
  - Blood parathyroid hormone decreased [Unknown]
  - Hypercalciuria [Unknown]
  - Off label use [Unknown]
